FAERS Safety Report 5273720-7 (Version None)
Quarter: 2007Q1

REPORT INFORMATION
  Report Type: 
  Country: None (occurrence: None)
  Receive Date: 20070323
  Receipt Date: 20070315
  Transmission Date: 20070707
  Serious: Yes (Life-Threatening)
  Sender: FDA-Public Use
  Company Number: IT-AVENTIS-200712359GDDC

PATIENT
  Age: 36 Year
  Sex: Female

DRUGS (1)
  1. RIFAMPICIN + ISONIAZIDE + PYRAZINAMIDE [Suspect]
     Dosage: DOSE: UNK

REACTIONS (1)
  - HEPATITIS A [None]
